FAERS Safety Report 23217540 (Version 1)
Quarter: 2023Q4

REPORT INFORMATION
  Report Type: Report from Study
  Country: CN (occurrence: CN)
  Receive Date: 20231122
  Receipt Date: 20231122
  Transmission Date: 20240109
  Serious: Yes (Hospitalization)
  Sender: FDA-Public Use
  Company Number: CN-Eisai-EC-2023-153182

PATIENT
  Age: 55 Year
  Sex: Male
  Weight: 83 kg

DRUGS (4)
  1. LENVATINIB [Suspect]
     Active Substance: LENVATINIB
     Indication: Hepatocellular carcinoma
     Route: 048
     Dates: start: 20210107, end: 20210331
  2. LENVATINIB [Suspect]
     Active Substance: LENVATINIB
     Route: 048
     Dates: start: 20210407
  3. TORIPALIMAB [Suspect]
     Active Substance: TORIPALIMAB
     Indication: Hepatocellular carcinoma
     Dosage: BLINDED DOSE
     Route: 042
     Dates: start: 20210107, end: 20210401
  4. ENTECAVIR [Concomitant]
     Active Substance: ENTECAVIR
     Indication: Hepatitis B
     Route: 048
     Dates: start: 2017

REACTIONS (1)
  - Fatigue [Unknown]

NARRATIVE: CASE EVENT DATE: 20210401
